FAERS Safety Report 9164773 (Version 1)
Quarter: 2013Q1

REPORT INFORMATION
  Report Type: Spontaneous
  Country: US (occurrence: US)
  Receive Date: 20130315
  Receipt Date: 20130315
  Transmission Date: 20140127
  Serious: No
  Sender: FDA-Public Use
  Company Number: US-PFIZER INC-2013083702

PATIENT
  Sex: Male

DRUGS (2)
  1. VIAGRA [Suspect]
     Dosage: 100 MG, AS NEEDED
     Route: 048
  2. DIOVAN HCT [Concomitant]
     Indication: HYPERTENSION
     Dosage: 25/320 MG, UNK

REACTIONS (1)
  - Drug ineffective [Unknown]
